FAERS Safety Report 8880992 (Version 5)
Quarter: 2013Q1

REPORT INFORMATION
  Report Type: Spontaneous
  Country: BE (occurrence: BE)
  Receive Date: 20121101
  Receipt Date: 20130117
  Transmission Date: 20140127
  Serious: Yes (Hospitalization)
  Sender: FDA-Public Use
  Company Number: BE-PFIZER INC-2012269530

PATIENT
  Age: 77 Year
  Sex: Male

DRUGS (2)
  1. PANTOMED [Suspect]
     Indication: ABDOMINAL PAIN UPPER
     Dosage: 40 MG, DAILY
     Route: 048
     Dates: start: 20120920, end: 20121015
  2. PRAVASTATIN [Concomitant]
     Indication: HYPERCHOLESTEROLAEMIA
     Dosage: 20MG, UNK SINCE 4 TO 5 YEARS

REACTIONS (1)
  - Drug-induced liver injury [Recovered/Resolved]
